FAERS Safety Report 5912144-3 (Version None)
Quarter: 2008Q4

REPORT INFORMATION
  Report Type: 
  Country: None (occurrence: None)
  Receive Date: 20081008
  Receipt Date: 20081007
  Transmission Date: 20090506
  Serious: Yes (Other)
  Sender: FDA-Public Use
  Company Number: US-RB-004856-08

PATIENT
  Sex: Female
  Weight: 2.02 kg

DRUGS (3)
  1. SUBUTEX [Suspect]
     Route: 063
     Dates: start: 20080711
  2. SUBUTEX [Suspect]
     Route: 064
     Dates: start: 20080115, end: 20080710
  3. SUBOXONE [Suspect]
     Route: 064
     Dates: start: 20071101, end: 20080114

REACTIONS (6)
  - DRUG EXPOSURE DURING PREGNANCY [None]
  - DRUG EXPOSURE VIA BREAST MILK [None]
  - FOETAL GROWTH RETARDATION [None]
  - IRRITABILITY [None]
  - JAUNDICE [None]
  - SMALL FOR DATES BABY [None]
